FAERS Safety Report 11189109 (Version 2)
Quarter: 2016Q2

REPORT INFORMATION
  Report Type: Spontaneous
  Country: DK (occurrence: DK)
  Receive Date: 20150615
  Receipt Date: 20160615
  Transmission Date: 20160815
  Serious: Yes (Hospitalization)
  Sender: FDA-Public Use
  Company Number: DK-AMGEN-DNKSP2015056596

PATIENT
  Age: 15 Year
  Sex: Male

DRUGS (9)
  1. PREDNISOLON DAK [Suspect]
     Active Substance: PREDNISOLONE
     Indication: JUVENILE IDIOPATHIC ARTHRITIS
     Dosage: UNK
     Route: 048
     Dates: start: 20120925
  2. FOLIC ACID. [Concomitant]
     Active Substance: FOLIC ACID
     Dosage: UNK, GIVEN ALONG WITH MTX
     Dates: start: 20121109, end: 20130313
  3. ENBREL [Suspect]
     Active Substance: ETANERCEPT
     Indication: JUVENILE IDIOPATHIC ARTHRITIS
     Dosage: UNK
     Route: 058
     Dates: start: 20121207, end: 20130214
  4. KENALOG [Suspect]
     Active Substance: TRIAMCINOLONE ACETONIDE
     Indication: JUVENILE IDIOPATHIC ARTHRITIS
     Dosage: MULTIPLE INJECTIONS IN JOINTS
     Route: 014
     Dates: start: 20120925
  5. GRANISETRON [Concomitant]
     Active Substance: GRANISETRON
     Indication: NAUSEA
     Dosage: UNK, GIVEN ALONG WITH MTX
     Dates: start: 20121109, end: 20130313
  6. METHOTREXATE SODIUM. [Suspect]
     Active Substance: METHOTREXATE SODIUM
     Dosage: DOSE: 12,5-15 MG
     Route: 058
     Dates: start: 20130226, end: 20130313
  7. BONYL [Suspect]
     Active Substance: NAPROXEN
     Indication: JUVENILE IDIOPATHIC ARTHRITIS
     Dosage: 250 MG, DAILY
     Route: 048
     Dates: start: 20121010, end: 20130812
  8. HUMIRA [Suspect]
     Active Substance: ADALIMUMAB
     Indication: JUVENILE IDIOPATHIC ARTHRITIS
     Dosage: 40 MG, EVERY 2 WEEKS
     Route: 058
     Dates: start: 20130214, end: 20130812
  9. METHOTREXATE SODIUM. [Suspect]
     Active Substance: METHOTREXATE SODIUM
     Indication: JUVENILE IDIOPATHIC ARTHRITIS
     Dosage: DOSE: 12,5-15 MG
     Route: 058
     Dates: start: 20121109, end: 20121207

REACTIONS (9)
  - Bone atrophy [Not Recovered/Not Resolved]
  - Gait disturbance [Recovering/Resolving]
  - Arthritis [Recovered/Resolved]
  - Synovitis [Recovered/Resolved]
  - Cartilage atrophy [Not Recovered/Not Resolved]
  - Joint injury [Recovering/Resolving]
  - Bone disorder [Not Recovered/Not Resolved]
  - Oedema peripheral [Recovered/Resolved]
  - Arthritis [Unknown]

NARRATIVE: CASE EVENT DATE: 2012
